FAERS Safety Report 16137493 (Version 1)
Quarter: 2019Q1

REPORT INFORMATION
  Report Type: Spontaneous
  Country: FR (occurrence: FR)
  Receive Date: 20190330
  Receipt Date: 20190330
  Transmission Date: 20190418
  Serious: Yes (Other)
  Sender: FDA-Public Use
  Company Number: FR-AUROBINDO-AUR-APL-2019-016565

PATIENT

DRUGS (1)
  1. TENOFOVIR DISOPROXIL [Suspect]
     Active Substance: TENOFOVIR DISOPROXIL
     Indication: HEPATITIS B
     Dosage: 245 MILLIGRAM, DAILY
     Route: 048
     Dates: start: 201708, end: 201709

REACTIONS (1)
  - Hyperemesis gravidarum [Recovered/Resolved]

NARRATIVE: CASE EVENT DATE: 201708
